FAERS Safety Report 19995093 (Version 1)
Quarter: 2021Q4

REPORT INFORMATION
  Report Type: Spontaneous
  Country: US (occurrence: US)
  Receive Date: 20211026
  Receipt Date: 20211026
  Transmission Date: 20220303
  Serious: Yes (Other)
  Sender: FDA-Public Use
  Company Number: US-GLAXOSMITHKLINE-US2021216575

PATIENT
  Age: 63 Year
  Sex: Female
  Weight: 65.23 kg

DRUGS (2)
  1. TRELEGY ELLIPTA [Suspect]
     Active Substance: FLUTICASONE FUROATE\UMECLIDINIUM BROMIDE\VILANTEROL TRIFENATATE
     Indication: Chronic obstructive pulmonary disease
     Dosage: 1 X A DAY
     Dates: start: 20210827, end: 202109
  2. ANORO ELLIPTA [Suspect]
     Active Substance: UMECLIDINIUM BROMIDE\VILANTEROL TRIFENATATE
     Indication: Product used for unknown indication
     Dosage: 1 A DAY
     Dates: start: 20210916, end: 20210923

REACTIONS (7)
  - Angina pectoris [Recovered/Resolved]
  - Cough [Recovered/Resolved]
  - Cardiac disorder [Recovered/Resolved]
  - Pain [Unknown]
  - Productive cough [Unknown]
  - Tremor [Unknown]
  - Condition aggravated [Unknown]

NARRATIVE: CASE EVENT DATE: 20210827
